FAERS Safety Report 8352794-0 (Version None)
Quarter: 2012Q2

REPORT INFORMATION
  Report Type: 
  Country: None (occurrence: None)
  Receive Date: 20120511
  Receipt Date: 20120504
  Transmission Date: 20120825
  Serious: Yes (Other)
  Sender: FDA-Public Use
  Company Number: BR-ASTELLAS-2012US004617

PATIENT

DRUGS (7)
  1. SIROLIMUS [Suspect]
     Indication: RENAL TRANSPLANT
     Dosage: 6 MG, TOTAL DOSE
     Route: 065
  2. PREDNISONE [Concomitant]
     Dosage: 10 MG, UNKNOWN/D
     Route: 065
  3. PREDNISONE [Concomitant]
     Dosage: 20 MG, UNKNOWN/D
     Route: 065
  4. SULFAMETHOXAZOLE AND TRIMETHOPRIM [Concomitant]
     Indication: ANTIFUNGAL PROPHYLAXIS
     Dosage: 400/80 MG, UID/QD
     Route: 065
  5. SIROLIMUS [Suspect]
     Dosage: 2 MG, UID/QD
     Route: 065
  6. PREDNISONE [Concomitant]
     Indication: RENAL TRANSPLANT
     Dosage: 0.5 MG/KG, UNKNOWN/D
     Route: 065
  7. TACROLIMUS [Suspect]
     Indication: RENAL TRANSPLANT
     Dosage: UNK BID
     Route: 065

REACTIONS (1)
  - PULMONARY EMBOLISM [None]
